FAERS Safety Report 5803510-5 (Version None)
Quarter: 2008Q2

REPORT INFORMATION
  Report Type: 
  Country: None (occurrence: None)
  Receive Date: 20080630
  Receipt Date: 20080207
  Transmission Date: 20081010
  Serious: Yes (Other)
  Sender: FDA-Public Use
  Company Number: PHEH2008US01627

PATIENT

DRUGS (1)
  1. EXJADE [Suspect]
     Dosage: ORAL
     Route: 048

REACTIONS (1)
  - LIVER DISORDER [None]
